FAERS Safety Report 17304708 (Version 1)
Quarter: 2020Q1

REPORT INFORMATION
  Report Type: Report from Study
  Country: CH (occurrence: CH)
  Receive Date: 20200122
  Receipt Date: 20200122
  Transmission Date: 20200409
  Serious: Yes (Congenital Anomaly, Other)
  Sender: FDA-Public Use
  Company Number: CH-ASTRAZENECA-2019SF85504

PATIENT
  Age: 0 Week

DRUGS (3)
  1. ROSUVASTATIN. [Suspect]
     Active Substance: ROSUVASTATIN
     Route: 064
  2. METFORMINE [Suspect]
     Active Substance: METFORMIN HYDROCHLORIDE
     Route: 064
  3. ALLOPURINOL. [Suspect]
     Active Substance: ALLOPURINOL
     Route: 064

REACTIONS (1)
  - Trisomy 21 [Unknown]
